FAERS Safety Report 12182501 (Version 1)
Quarter: 2016Q1

REPORT INFORMATION
  Report Type: Spontaneous
  Country: CA (occurrence: CA)
  Receive Date: 20160316
  Receipt Date: 20160316
  Transmission Date: 20160526
  Serious: Yes (Death)
  Sender: FDA-Public Use
  Company Number: CA-009507513-1603CAN007067

PATIENT
  Age: 22 Year
  Sex: Male
  Weight: 84 kg

DRUGS (1)
  1. KEYTRUDA [Suspect]
     Active Substance: PEMBROLIZUMAB
     Indication: MALIGNANT MELANOMA
     Dosage: 168 MG, Q3W
     Route: 042
     Dates: start: 20151016

REACTIONS (1)
  - Death [Fatal]

NARRATIVE: CASE EVENT DATE: 20160119
